FAERS Safety Report 14635632 (Version 2)
Quarter: 2020Q3

REPORT INFORMATION
  Report Type: Spontaneous
  Country: IT (occurrence: IT)
  Receive Date: 20180314
  Receipt Date: 20180326
  Transmission Date: 20201105
  Serious: Yes (Hospitalization)
  Sender: FDA-Public Use
  Company Number: IT-AUROBINDO-AUR-APL-2018-013581

PATIENT
  Age: 65 Year
  Sex: Female

DRUGS (6)
  1. METHYLPREDNISOLONE. [Concomitant]
     Active Substance: METHYLPREDNISOLONE
     Indication: RHEUMATOID ARTHRITIS
     Dosage: 4 MILLIGRAM, ONCE A DAY
     Route: 065
  2. METHYLPREDNISOLONE. [Concomitant]
     Active Substance: METHYLPREDNISOLONE
     Dosage: 4 MILLIGRAM
     Route: 065
  3. IBANDRONATE SODIUM. [Suspect]
     Active Substance: IBANDRONATE SODIUM
     Indication: OSTEOPENIA
     Route: 048
     Dates: start: 2007
  4. AZATHIOPRINE. [Concomitant]
     Active Substance: AZATHIOPRINE
     Dosage: 50 MILLIGRAM
     Route: 065
  5. AZATHIOPRINE. [Concomitant]
     Active Substance: AZATHIOPRINE
     Indication: IMMUNOSUPPRESSION
     Dosage: 150 MILLIGRAM, EVERY WEEK
     Route: 065
  6. IBANDRONIC ACID. [Suspect]
     Active Substance: IBANDRONIC ACID
     Indication: OSTEOPENIA
     Dosage: 150 MILLIGRAM, 1 MONTH
     Route: 048
     Dates: start: 2007

REACTIONS (11)
  - Oral pain [Recovering/Resolving]
  - Osteonecrosis of jaw [Recovering/Resolving]
  - Inflammation [Recovering/Resolving]
  - Red blood cell sedimentation rate increased [Recovering/Resolving]
  - Trismus [Recovering/Resolving]
  - Trismus [Recovering/Resolving]
  - Oral pain [Recovering/Resolving]
  - Swelling [Recovering/Resolving]
  - Inflammation [Recovering/Resolving]
  - Red blood cell sedimentation rate increased [Recovering/Resolving]
  - Swelling [Recovering/Resolving]

NARRATIVE: CASE EVENT DATE: 200908
